FAERS Safety Report 6418101-5 (Version None)
Quarter: 2009Q4

REPORT INFORMATION
  Report Type: 
  Country: None (occurrence: None)
  Receive Date: 20091028
  Receipt Date: 20091020
  Transmission Date: 20100525
  Serious: Yes (Other)
  Sender: FDA-Public Use
  Company Number: US-JNJFOC-20091006394

PATIENT
  Age: 53 Year
  Sex: Female
  Weight: 104.33 kg

DRUGS (8)
  1. TYLENOL (CAPLET) [Suspect]
     Route: 048
  2. TYLENOL (CAPLET) [Suspect]
     Indication: ARTHRITIS
     Route: 048
  3. CYMBALTA [Concomitant]
     Indication: FIBROMYALGIA
  4. METFORMIN HCL [Concomitant]
     Indication: DIABETES MELLITUS
  5. AMARYL [Concomitant]
     Indication: DIABETES MELLITUS
  6. JANUVIA [Concomitant]
     Indication: DIABETES MELLITUS
  7. LANTUS [Concomitant]
     Indication: DIABETES MELLITUS
  8. PRAVASTATIN [Concomitant]
     Indication: BLOOD CHOLESTEROL INCREASED

REACTIONS (3)
  - DYSPNOEA [None]
  - PRURITUS [None]
  - SWELLING FACE [None]
